FAERS Safety Report 17651624 (Version 3)
Quarter: 2022Q4

REPORT INFORMATION
  Report Type: Spontaneous
  Country: DE (occurrence: DE)
  Receive Date: 20200409
  Receipt Date: 20221212
  Transmission Date: 20230113
  Serious: Yes (Disabling, Other)
  Sender: FDA-Public Use
  Company Number: DE-TEVA-2020-DE-1221791

PATIENT
  Age: 73 Year
  Sex: Female
  Weight: 75 kg

DRUGS (23)
  1. VALSARTAN [Suspect]
     Active Substance: VALSARTAN
     Indication: Product used for unknown indication
     Dosage: 80 MILLIGRAM DAILY; DAILY INTAKE?IN TOTAL 7 PACKS 98 FILM COATED TABLETS, SUMMED UP 686 FILM COATED
     Route: 048
     Dates: start: 20150129, end: 20180324
  2. VALSARTAN [Suspect]
     Active Substance: VALSARTAN
     Indication: Product used for unknown indication
     Dosage: 80 MILLIGRAM DAILY; 1 PACK OF 98 FILM COATED TABLETS
     Route: 065
     Dates: start: 20140714
  3. DEXAMETHASONE SODIUM PHOSPHATE\GENTAMICIN SULFATE [Concomitant]
     Active Substance: DEXAMETHASONE SODIUM PHOSPHATE\GENTAMICIN SULFATE
     Indication: Product used for unknown indication
     Dates: start: 20170904
  4. METAMIZOLE [Concomitant]
     Active Substance: METAMIZOLE
     Indication: Product used for unknown indication
     Dosage: LICHTENSTEIN ORAL DROPS (INN METAMIZOLE)
     Dates: start: 20161208
  5. TORSEMIDE [Concomitant]
     Active Substance: TORSEMIDE
     Indication: Product used for unknown indication
     Dates: end: 20161208
  6. METOPROLOL [Concomitant]
     Active Substance: METOPROLOL
     Indication: Product used for unknown indication
     Dosage: 50 (VARIOUS MAH)
     Dates: start: 20161208
  7. ACLIDINIUM BROMIDE\FORMOTEROL FUMARATE [Concomitant]
     Active Substance: ACLIDINIUM BROMIDE\FORMOTEROL FUMARATE
     Indication: Product used for unknown indication
     Dosage: 340 MICROGRAM/12 MICROGRAM, ( 1 DF CONTAINS 340 MICROGRAM ACLIDINIUM AND 12 MICROGRAM FORMOTEROL)
     Dates: start: 20161208
  8. OMEPRAZOLE [Concomitant]
     Active Substance: OMEPRAZOLE
     Indication: Product used for unknown indication
     Dates: start: 20170117
  9. Simvastatun (various MAH) [Concomitant]
     Indication: Product used for unknown indication
     Dates: start: 20170117
  10. Anastrozol (various MAH) [Concomitant]
     Indication: Product used for unknown indication
     Dates: start: 20170119
  11. ALLOPURINOL [Concomitant]
     Active Substance: ALLOPURINOL
     Indication: Product used for unknown indication
     Dates: start: 20170208
  12. ENOXAPARIN SODIUM [Concomitant]
     Active Substance: ENOXAPARIN SODIUM
     Indication: Product used for unknown indication
     Dosage: 40 MG 0.4 ML
     Dates: start: 20170214
  13. HYPERICUM PERFORATUM WHOLE [Concomitant]
     Active Substance: HYPERICUM PERFORATUM WHOLE
     Indication: Product used for unknown indication
     Dosage: 900 (HYPERICUM PERFORATUM EXTRACT)
     Dates: start: 20170221
  14. SPIRONOLACTONE [Concomitant]
     Active Substance: SPIRONOLACTONE
     Indication: Product used for unknown indication
     Dates: start: 20170320
  15. LEVOTHYROXINE SODIUM [Concomitant]
     Active Substance: LEVOTHYROXINE SODIUM
     Indication: Product used for unknown indication
     Dosage: 150
     Dates: start: 20170509
  16. LEVOTHYROXINE SODIUM [Concomitant]
     Active Substance: LEVOTHYROXINE SODIUM
     Dosage: 125
     Dates: start: 20170830
  17. NYSTALOCAL [Concomitant]
     Indication: Product used for unknown indication
     Dates: start: 20170420
  18. SALBUHEXAL [Concomitant]
     Active Substance: ALBUTEROL
     Indication: Product used for unknown indication
     Dates: start: 20170516
  19. ACICLOVIR ARISTO [Concomitant]
     Indication: Product used for unknown indication
     Dates: start: 20170529
  20. OLODATEROL HYDROCHLORIDE\TIOTROPIUM BROMIDE MONOHYDRATE [Concomitant]
     Active Substance: OLODATEROL HYDROCHLORIDE\TIOTROPIUM BROMIDE MONOHYDRATE
     Indication: Product used for unknown indication
     Dates: start: 20170824
  21. UMECLIDINIUM BROMIDE\VILANTEROL TRIFENATATE [Concomitant]
     Active Substance: UMECLIDINIUM BROMIDE\VILANTEROL TRIFENATATE
     Indication: Product used for unknown indication
     Dosage: 55 MICROGRAM/22 MICROGRAM
     Dates: start: 20171130
  22. DEXAMETHASONE\NEOMYCIN SULFATE\POLYMYXIN B SULFATE [Concomitant]
     Active Substance: DEXAMETHASONE\NEOMYCIN SULFATE\POLYMYXIN B SULFATE
     Indication: Product used for unknown indication
     Dates: start: 20180118
  23. PREDNISOLONE [Concomitant]
     Active Substance: PREDNISOLONE
     Indication: Product used for unknown indication
     Dates: start: 20180328

REACTIONS (8)
  - Breast cancer female [Unknown]
  - Lung neoplasm malignant [Unknown]
  - Colon cancer [Unknown]
  - Disability [Unknown]
  - Mental disorder [Unknown]
  - Product impurity [Unknown]
  - Intestinal polyp [Unknown]
  - Impaired quality of life [Unknown]

NARRATIVE: CASE EVENT DATE: 20160101
